FAERS Safety Report 5125295-0 (Version None)
Quarter: 2006Q4

REPORT INFORMATION
  Report Type: 
  Country: None (occurrence: None)
  Receive Date: 20061010
  Receipt Date: 20060922
  Transmission Date: 20070319
  Serious: Yes (Hospitalization)
  Sender: FDA-Public Use
  Company Number: IND-AE-06-SAN-041

PATIENT
  Age: 75 Year
  Sex: Male

DRUGS (11)
  1. CERIS (TROSPIUM  CHLORIDE) MADAUS [Suspect]
     Dosage: 2 TABLETS- ORAL
     Route: 048
     Dates: start: 20060731, end: 20060821
  2. OLMIFON (ADRAFINIL) [Concomitant]
  3. COMPRALGYL (ACETYLSALICYLIQUE ACID, CODEINE) [Concomitant]
  4. XYLOCAINE [Concomitant]
  5. URIDOZ ADULTE (FOSFOMYCINE TROMETAMOL) [Concomitant]
  6. IRBESARTAN [Concomitant]
  7. LOXEN (NICARDIPINE) [Concomitant]
  8. LASIX [Concomitant]
  9. PREVISCAN (FLUINDIONE) [Concomitant]
  10. CIPRALAN [Concomitant]
  11. VASTAREL (TRIMETAZIDIME) [Concomitant]

REACTIONS (2)
  - ORAL CANDIDIASIS [None]
  - STEVENS-JOHNSON SYNDROME [None]
